FAERS Safety Report 5221745-X (Version None)
Quarter: 2007Q1

REPORT INFORMATION
  Report Type: 
  Country: None (occurrence: None)
  Receive Date: 20070125
  Receipt Date: 20070125
  Transmission Date: 20070707
  Serious: Yes (Life-Threatening)
  Sender: FDA-Public Use
  Company Number: None

PATIENT
  Age: 12 Year
  Sex: Male
  Weight: 60 kg

DRUGS (2)
  1. RASBURICASE 1.5MG SANOF [Suspect]
     Indication: BLOOD URIC ACID INCREASED
     Dosage: 10.5MG ONCE IV
     Route: 042
  2. RASBURICASE 1.5MG SANOF [Suspect]
     Indication: TUMOUR LYSIS SYNDROME
     Dosage: 10.5MG ONCE IV
     Route: 042

REACTIONS (5)
  - GLUCOSE-6-PHOSPHATE DEHYDROGENASE DEFICIENCY [None]
  - HYPOXIA [None]
  - LOSS OF CONSCIOUSNESS [None]
  - METHAEMOGLOBINAEMIA [None]
  - NO THERAPEUTIC RESPONSE [None]
